FAERS Safety Report 4698959-0 (Version None)
Quarter: 2005Q2

REPORT INFORMATION
  Report Type: 
  Country: None (occurrence: None)
  Receive Date: 20050624
  Receipt Date: 20050610
  Transmission Date: 20051028
  Serious: Yes (Other)
  Sender: FDA-Public Use
  Company Number: PHBS2005BR08422

PATIENT
  Age: 56 Year
  Sex: Female

DRUGS (3)
  1. DIOVAN HCT [Suspect]
     Indication: HYPERTENSION
     Dosage: VALS 160 /HCT 12.5 MG,BID
     Route: 048
     Dates: start: 20040101
  2. ATENOL [Concomitant]
     Indication: HYPERTENSION
     Dosage: UNK, QD
     Route: 048
  3. SERTRALINE HCL [Concomitant]
     Indication: DEPRESSION
     Dosage: 50 MG, QD
     Route: 048

REACTIONS (1)
  - CATHETERISATION CARDIAC [None]
